FAERS Safety Report 5584301-X (Version None)
Quarter: 2008Q1

REPORT INFORMATION
  Report Type: 
  Country: None (occurrence: None)
  Receive Date: 20080108
  Receipt Date: 20071227
  Transmission Date: 20080703
  Serious: Yes (Hospitalization)
  Sender: FDA-Public Use
  Company Number: FR-WYE-H01916308

PATIENT
  Age: 58 Year
  Sex: Male

DRUGS (1)
  1. CORDARONE [Suspect]
     Dosage: 800 MG ONCE
     Route: 048
     Dates: start: 20071114, end: 20071114

REACTIONS (3)
  - ACUTE VESTIBULAR SYNDROME [None]
  - ATAXIA [None]
  - PARAESTHESIA [None]
